FAERS Safety Report 17395328 (Version 1)
Quarter: 2020Q1

REPORT INFORMATION
  Report Type: Spontaneous
  Country: DE (occurrence: DE)
  Receive Date: 20200210
  Receipt Date: 20200210
  Transmission Date: 20200409
  Serious: Yes (Other)
  Sender: FDA-Public Use
  Company Number: DE-TORRENT-00016750

PATIENT
  Age: 1 Day
  Sex: Female
  Weight: 2 kg

DRUGS (3)
  1. FEMIBION 2 [Concomitant]
     Indication: PROPHYLAXIS OF NEURAL TUBE DEFECT
     Dosage: 0.4 [MG/D]
     Route: 064
     Dates: start: 20181102, end: 20190808
  2. THYRONAJOD [Concomitant]
     Active Substance: LEVOTHYROXINE SODIUM\POTASSIUM IODIDE
     Indication: HYPOTHYROIDISM
     Dosage: 100 [G/D] / 150 [G/D]
     Route: 064
     Dates: start: 20181102, end: 20190808
  3. VENLAFAXINE [Suspect]
     Active Substance: VENLAFAXINE HYDROCHLORIDE
     Indication: ANXIETY DISORDER
     Dosage: 150 [MG/D ]
     Route: 064
     Dates: start: 20181102, end: 20190808

REACTIONS (2)
  - Foetal exposure during pregnancy [Unknown]
  - Small for dates baby [Recovered/Resolved]

NARRATIVE: CASE EVENT DATE: 20181102
